FAERS Safety Report 8916479 (Version 2)
Quarter: 2012Q4

REPORT INFORMATION
  Report Type: 
  Country: US (occurrence: US)
  Receive Date: 20121120
  Receipt Date: 20121206
  Transmission Date: 20130627
  Serious: No
  Sender: FDA-Public Use
  Company Number: US-VERTEX PHARMACEUTICAL INC.-2012-024803

PATIENT
  Age: 24 Year
  Sex: Female
  Weight: 59 kg

DRUGS (7)
  1. VX-950 (TELAPREVIR) [Suspect]
     Indication: HEPATITIS C
     Dosage: 750 mg, tid
     Route: 048
  2. PEGASYS [Concomitant]
     Indication: HEPATITIS C
     Dosage: 180 ?g, UNK
     Route: 058
  3. RIBAVIRIN [Concomitant]
     Indication: HEPATITIS C
     Dosage: 200 mg, qd
     Route: 048
  4. NAPROSYN /00256201/ [Concomitant]
     Dosage: 375 mg, qd
  5. CYCLOBENZAPRINE                    /00428402/ [Concomitant]
     Dosage: 30 mg, qd
  6. ZANTAC [Concomitant]
     Dosage: 75 mg, qd
  7. TUMS                               /00193601/ [Concomitant]
     Dosage: 500 mg, qd

REACTIONS (3)
  - White blood cell count decreased [Unknown]
  - Nerve compression [Unknown]
  - Reflux gastritis [Unknown]
